FAERS Safety Report 7894395-4 (Version None)
Quarter: 2011Q4

REPORT INFORMATION
  Report Type: 
  Country: None (occurrence: None)
  Receive Date: 20111104
  Receipt Date: 20111026
  Transmission Date: 20120403
  Serious: Yes (Hospitalization)
  Sender: FDA-Public Use
  Company Number: FR-ASTRAZENECA-2011SE64981

PATIENT
  Age: 87 Year
  Sex: Male

DRUGS (8)
  1. PREDNISONE [Concomitant]
  2. REPAGLINIDE [Concomitant]
  3. CRESTOR [Suspect]
     Route: 048
     Dates: start: 20110830, end: 20110926
  4. PANTOPRAZOLE SODIUM [Concomitant]
  5. TRANSIPEG [Concomitant]
  6. ACETAMINOPHEN [Concomitant]
  7. PREVISCAN [Concomitant]
  8. CALCIUM CARBONATE [Concomitant]

REACTIONS (2)
  - THROMBOCYTOPENIA [None]
  - PURPURA [None]
